FAERS Safety Report 16261129 (Version 1)
Quarter: 2019Q2

REPORT INFORMATION
  Report Type: Report from Study
  Country: US (occurrence: US)
  Receive Date: 20190501
  Receipt Date: 20190501
  Transmission Date: 20190711
  Serious: Yes (Hospitalization)
  Sender: FDA-Public Use
  Company Number: US-ACTELION-A-US2016-143466

PATIENT
  Age: 73 Year
  Sex: Female

DRUGS (11)
  1. UPTRAVI [Suspect]
     Active Substance: SELEXIPAG
     Dosage: UNK
     Route: 048
  2. UPTRAVI [Suspect]
     Active Substance: SELEXIPAG
     Dosage: 1400 MCG, BID
     Route: 048
  3. ADCIRCA [Concomitant]
     Active Substance: TADALAFIL
  4. OPSUMIT [Suspect]
     Active Substance: MACITENTAN
     Dosage: 10 UNK
     Route: 048
  5. OPSUMIT [Suspect]
     Active Substance: MACITENTAN
     Indication: PULMONARY ARTERIAL HYPERTENSION
     Dosage: 10 MG, QD
     Route: 048
     Dates: start: 20160906, end: 20161109
  6. UPTRAVI [Suspect]
     Active Substance: SELEXIPAG
     Dosage: 1000 MCG, BID
     Route: 048
     Dates: start: 20160909
  7. DILTIAZEM. [Concomitant]
     Active Substance: DILTIAZEM
  8. UPTRAVI [Suspect]
     Active Substance: SELEXIPAG
     Indication: PULMONARY ARTERIAL HYPERTENSION
     Dosage: 1600 MCG, BID
     Route: 048
  9. UPTRAVI [Suspect]
     Active Substance: SELEXIPAG
     Dosage: 800 MCG, BID
     Route: 048
  10. NIFEDIPINE. [Concomitant]
     Active Substance: NIFEDIPINE
  11. UPTRAVI [Suspect]
     Active Substance: SELEXIPAG
     Dosage: 1200 MCG, BID
     Route: 048
     Dates: start: 20160909

REACTIONS (21)
  - Musculoskeletal chest pain [Unknown]
  - Vomiting [Unknown]
  - Fatigue [Unknown]
  - Influenza [Unknown]
  - Cold sweat [Unknown]
  - Respiratory tract congestion [Unknown]
  - Pain in extremity [Unknown]
  - Myalgia [Unknown]
  - Nausea [Unknown]
  - Constipation [Unknown]
  - Headache [Unknown]
  - Pleurisy [Unknown]
  - Gastrointestinal disorder [Unknown]
  - Condition aggravated [Unknown]
  - Pain in jaw [Unknown]
  - Neck pain [Unknown]
  - Respiratory tract infection [Unknown]
  - Pneumonia [Unknown]
  - Dyspepsia [Unknown]
  - Diarrhoea [Unknown]
  - Dyspnoea [Unknown]

NARRATIVE: CASE EVENT DATE: 201610
